FAERS Safety Report 4310780-1 (Version None)
Quarter: 2004Q1

REPORT INFORMATION
  Report Type: 
  Country: None (occurrence: None)
  Receive Date: 20040303
  Receipt Date: 20040223
  Transmission Date: 20041129
  Serious: Yes (Death, Hospitalization, Disabling)
  Sender: FDA-Public Use
  Company Number: WAES 0402USA01736

PATIENT
  Age: 27 Year
  Sex: Male
  Weight: 56 kg

DRUGS (1)
  1. STROMECTOL [Suspect]
     Route: 048
     Dates: start: 20031101, end: 20031101

REACTIONS (6)
  - ASTHENIA [None]
  - COMA [None]
  - CONJUNCTIVAL HYPERAEMIA [None]
  - ENCEPHALOPATHY [None]
  - HYPERTHERMIA [None]
  - LOSS OF CONSCIOUSNESS [None]
